FAERS Safety Report 9848885 (Version 1)
Quarter: 2014Q1

REPORT INFORMATION
  Report Type: Spontaneous
  Country: US (occurrence: None)
  Receive Date: 20140124
  Receipt Date: 20140124
  Transmission Date: 20141002
  Serious: Yes (Other)
  Sender: FDA-Public Use
  Company Number: None

PATIENT
  Age: 50 Year
  Sex: Male
  Weight: 80 kg

DRUGS (4)
  1. VALACYCLOVIR 1 GRAM [Suspect]
     Indication: GENITAL HERPES SIMPLEX
     Route: 048
     Dates: end: 20140120
  2. SIMVISTATIN [Concomitant]
  3. SEPTRA SUSPENSION [Concomitant]
  4. TRUVADA [Concomitant]

REACTIONS (1)
  - Vomiting [None]
